FAERS Safety Report 4322041-5 (Version None)
Quarter: 2004Q1

REPORT INFORMATION
  Report Type: 
  Country: None (occurrence: None)
  Receive Date: 20040319
  Receipt Date: 20040309
  Transmission Date: 20041129
  Serious: Yes (Hospitalization)
  Sender: FDA-Public Use
  Company Number: 2004US000292

PATIENT
  Age: 45 Year
  Sex: Male
  Weight: 70.8 kg

DRUGS (3)
  1. PROGRAF [Suspect]
     Indication: RENAL TRANSPLANT
     Dates: start: 20020426
  2. CELLCEPT [Concomitant]
  3. PREDNISONE [Concomitant]

REACTIONS (1)
  - EPIDIDYMITIS [None]
